FAERS Safety Report 23378202 (Version 2)
Quarter: 2024Q1

REPORT INFORMATION
  Report Type: Spontaneous
  Country: PL (occurrence: PL)
  Receive Date: 20240108
  Receipt Date: 20240220
  Transmission Date: 20240410
  Serious: Yes (Hospitalization)
  Sender: FDA-Public Use
  Company Number: PL-AUROBINDO-AUR-APL-2023-056998

PATIENT
  Age: 31 Year
  Sex: Male

DRUGS (9)
  1. IBUPROFEN [Suspect]
     Active Substance: IBUPROFEN
     Indication: Analgesic therapy
     Dosage: UNK
     Route: 065
  2. MELOXICAM [Suspect]
     Active Substance: MELOXICAM
     Indication: Analgesic therapy
     Dosage: UNK
     Route: 065
  3. METAMIZOLE [Suspect]
     Active Substance: METAMIZOLE
     Indication: Analgesic therapy
     Dosage: UNK
     Route: 065
  4. ACETAMINOPHEN [Suspect]
     Active Substance: ACETAMINOPHEN
     Indication: Analgesic therapy
     Dosage: UNK
     Route: 065
  5. DOXYLAMINE [Concomitant]
     Active Substance: DOXYLAMINE
     Indication: Depression
     Dosage: 25 MILLIGRAM, ONCE A DAY (AT NIGHT)
     Route: 065
  6. CIPROFLOXACIN [Interacting]
     Active Substance: CIPROFLOXACIN
     Indication: Prostatitis
     Dosage: 500 MILLIGRAM, TWO TIMES A DAY
     Route: 048
  7. CIPROFLOXACIN [Interacting]
     Active Substance: CIPROFLOXACIN
     Dosage: 500 MILLIGRAM, ONCE A DAY
     Route: 048
  8. DICLOFENAC [Interacting]
     Active Substance: DICLOFENAC
     Indication: Prostatitis
     Dosage: 100 MILLIGRAM (2 X 50 MG)
     Route: 065
  9. SERTRALINE [Interacting]
     Active Substance: SERTRALINE HYDROCHLORIDE
     Indication: Depression
     Dosage: 50 MILLIGRAM, ONCE A DAY (MORNING)
     Route: 065

REACTIONS (4)
  - Pain [Recovered/Resolved]
  - Prostatic pain [Recovered/Resolved]
  - Drug interaction [Recovered/Resolved]
  - Drug ineffective [Unknown]
